FAERS Safety Report 16274121 (Version 2)
Quarter: 2019Q2

REPORT INFORMATION
  Report Type: Report from Study
  Country: NO (occurrence: NO)
  Receive Date: 20190504
  Receipt Date: 20190610
  Transmission Date: 20190711
  Serious: Yes (Hospitalization, Other)
  Sender: FDA-Public Use
  Company Number: NO-ROCHE-2309198

PATIENT

DRUGS (5)
  1. CETIRIZINE [Concomitant]
     Active Substance: CETIRIZINE HYDROCHLORIDE
     Route: 065
  2. RITUXIMAB. [Suspect]
     Active Substance: RITUXIMAB
     Indication: POST VIRAL FATIGUE SYNDROME
     Dosage: INDUCTION THERAPY: 2 INFUSIONS, 2 WEEKS APART
     Route: 042
  3. RITUXIMAB. [Suspect]
     Active Substance: RITUXIMAB
     Indication: CHRONIC FATIGUE SYNDROME
     Dosage: MAINTENANCE THERAPY: AT 3, 6, 9, AND 12 MONTHS
     Route: 042
  4. ACETAMINOPHEN. [Concomitant]
     Active Substance: ACETAMINOPHEN
     Route: 048
  5. DEXAMETHASONE. [Concomitant]
     Active Substance: DEXAMETHASONE
     Route: 065

REACTIONS (22)
  - Facial pain [Unknown]
  - Cerebral ischaemia [Unknown]
  - Anxiety [Unknown]
  - General physical health deterioration [Unknown]
  - Depression [Unknown]
  - Headache [Unknown]
  - Gastritis [Unknown]
  - Dizziness [Unknown]
  - Uterine haemorrhage [Unknown]
  - Infusion related reaction [Unknown]
  - Cholecystitis [Unknown]
  - Lung infection [Unknown]
  - Dyskinesia [Unknown]
  - Metrorrhagia [Unknown]
  - Neutropenia [Unknown]
  - Febrile neutropenia [Unknown]
  - Supraventricular tachycardia [Unknown]
  - Gastroenteritis [Unknown]
  - Facial nerve disorder [Unknown]
  - Non-cardiac chest pain [Unknown]
  - Appendicitis [Unknown]
  - Coronary artery disease [Unknown]
